FAERS Safety Report 10237289 (Version 1)
Quarter: 2014Q2

REPORT INFORMATION
  Report Type: Spontaneous
  Country: GB (occurrence: GB)
  Receive Date: 20140613
  Receipt Date: 20140613
  Transmission Date: 20141212
  Serious: Yes (Disabling)
  Sender: FDA-Public Use
  Company Number: GB-ABBVIE-14P-167-1245697-00

PATIENT
  Age: 42 Year
  Sex: Female

DRUGS (3)
  1. HUMIRA [Suspect]
     Indication: PSORIASIS
     Route: 058
     Dates: start: 20140312, end: 20140409
  2. CICLOSPORIN [Concomitant]
     Indication: PSORIASIS
     Route: 048
     Dates: start: 2008
  3. ACITRETIN [Concomitant]
     Indication: PSORIASIS
     Route: 048
     Dates: start: 20131210, end: 20140214

REACTIONS (1)
  - Arthropathy [Not Recovered/Not Resolved]
